FAERS Safety Report 17507931 (Version 1)
Quarter: 2020Q1

REPORT INFORMATION
  Report Type: Spontaneous
  Country: US (occurrence: US)
  Receive Date: 20200306
  Receipt Date: 20200306
  Transmission Date: 20200409
  Serious: No
  Sender: FDA-Public Use
  Company Number: US-009507513-2002USA009927

PATIENT
  Sex: Female

DRUGS (4)
  1. DESLORATADINE. [Suspect]
     Active Substance: DESLORATADINE
  2. ALLEGRA [Suspect]
     Active Substance: FEXOFENADINE HYDROCHLORIDE
  3. ZYRTEC [Suspect]
     Active Substance: CETIRIZINE HYDROCHLORIDE
  4. CLARINEX [Suspect]
     Active Substance: DESLORATADINE

REACTIONS (3)
  - Emotional distress [Unknown]
  - Drug ineffective [Unknown]
  - Fatigue [Unknown]
